FAERS Safety Report 25609939 (Version 2)
Quarter: 2025Q3

REPORT INFORMATION
  Report Type: Spontaneous
  Country: EU (occurrence: EU)
  Receive Date: 20250728
  Receipt Date: 20250804
  Transmission Date: 20251021
  Serious: Yes (Hospitalization)
  Sender: NOVO NORDISK
  Company Number: EU-NOVOPROD-1482690

PATIENT
  Age: 41 Month
  Sex: Male
  Weight: 20.2 kg

DRUGS (2)
  1. CONCIZUMAB [Suspect]
     Active Substance: CONCIZUMAB
     Indication: Anaphylactic reaction
     Dosage: 4.20 MG, QD
     Dates: start: 20250716
  2. CONCIZUMAB [Suspect]
     Active Substance: CONCIZUMAB
     Indication: Haemophilia B with anti factor IX
     Dosage: 3.80 MG, QD
     Dates: end: 20250715

REACTIONS (4)
  - Haemarthrosis [Recovering/Resolving]
  - Fall [Unknown]
  - Joint swelling [Recovering/Resolving]
  - Off label use [Not Recovered/Not Resolved]

NARRATIVE: CASE EVENT DATE: 20250710
